FAERS Safety Report 20462167 (Version 2)
Quarter: 2022Q1

REPORT INFORMATION
  Report Type: Spontaneous
  Country: US (occurrence: US)
  Receive Date: 20220211
  Receipt Date: 20220224
  Transmission Date: 20220424
  Serious: Yes (Other)
  Sender: FDA-Public Use
  Company Number: US-SANOFI-00963040

PATIENT
  Sex: Male

DRUGS (1)
  1. DULCOLAX LIQUID (MAGNESIUM HYDROXIDE) [Suspect]
     Active Substance: MAGNESIUM HYDROXIDE
     Dosage: UNK

REACTIONS (3)
  - Haematochezia [Unknown]
  - Gastrointestinal pain [Not Recovered/Not Resolved]
  - Unevaluable event [Unknown]
